FAERS Safety Report 4652045-4 (Version None)
Quarter: 2005Q2

REPORT INFORMATION
  Report Type: 
  Country: None (occurrence: None)
  Receive Date: 20050502
  Receipt Date: 20050419
  Transmission Date: 20051028
  Serious: Yes (Other)
  Sender: FDA-Public Use
  Company Number: 2004205035US

PATIENT
  Age: 53 Year
  Sex: Male

DRUGS (9)
  1. CELEBREX [Suspect]
     Indication: ILL-DEFINED DISORDER
  2. OMEPRAZOLE [Concomitant]
  3. WARFARIN SODIUM [Concomitant]
  4. PANTOPRAZOLE (PANTOPRAZOLE) [Concomitant]
  5. PHENYTOIN SODIUM [Concomitant]
  6. CARISOPRODOL [Concomitant]
  7. PROPACET 100 [Concomitant]
  8. CENTRUM (MINERALS NOS, VITAMINS NOS) [Concomitant]
  9. ASPIRIN [Concomitant]

REACTIONS (14)
  - BACK PAIN [None]
  - BLOOD TRIGLYCERIDES INCREASED [None]
  - CARDIOMEGALY [None]
  - CEREBROVASCULAR ACCIDENT [None]
  - CHEST PAIN [None]
  - DIFFICULTY IN WALKING [None]
  - DILATATION ATRIAL [None]
  - DYSPNOEA [None]
  - GASTROINTESTINAL HAEMORRHAGE [None]
  - HEADACHE [None]
  - INJURY [None]
  - PAIN IN EXTREMITY [None]
  - SENSORY DISTURBANCE [None]
  - TRANSIENT ISCHAEMIC ATTACK [None]
